FAERS Safety Report 8845152 (Version 1)
Quarter: 2012Q4

REPORT INFORMATION
  Report Type: Spontaneous
  Country: US (occurrence: None)
  Receive Date: 20121016
  Receipt Date: 20121016
  Transmission Date: 20130627
  Serious: Yes (Hospitalization)
  Sender: FDA-Public Use
  Company Number: None

PATIENT
  Age: 59 Year
  Sex: Female
  Weight: 95.4 kg

DRUGS (20)
  1. OXYCODONE [Suspect]
     Indication: HIP SURGERY
     Route: 048
  2. OXYCODONE [Suspect]
     Indication: HIP SURGERY
     Route: 048
  3. OXYCODONE [Suspect]
     Indication: HIP SURGERY
  4. SEPTRA DS [Suspect]
     Indication: STENOTROPHOMONAS INFECTION
     Route: 048
  5. CELECOXIB [Suspect]
  6. HCTZ [Suspect]
  7. WARFARIN [Concomitant]
  8. AMLODIPINE/ATORVASTIN [Concomitant]
  9. MVI [Concomitant]
  10. CHOLCALCIFEROL [Concomitant]
  11. CITALOPRAM [Concomitant]
  12. PRILOSEC [Concomitant]
  13. CAL VITD [Concomitant]
  14. SENOKOT [Concomitant]
  15. LEFLUNOMIDE [Concomitant]
  16. DULCO [Concomitant]
  17. DULCOLAX PREDNISONE [Concomitant]
  18. KLOR-CON [Concomitant]
  19. BUPROPION [Concomitant]
  20. FOLIC ACID [Concomitant]

REACTIONS (8)
  - Renal failure acute [None]
  - Dehydration [None]
  - Hypotension [None]
  - Encephalopathy [None]
  - Hypophagia [None]
  - Diarrhoea [None]
  - Hypoperfusion [None]
  - Mental status changes [None]
